FAERS Safety Report 9436185 (Version 1)
Quarter: 2013Q3

REPORT INFORMATION
  Report Type: Spontaneous
  Country: US (occurrence: US)
  Receive Date: 20130801
  Receipt Date: 20130801
  Transmission Date: 20140515
  Serious: Yes (Other)
  Sender: FDA-Public Use
  Company Number: US-RB-056707-13

PATIENT
  Age: 37 Year
  Sex: Female

DRUGS (2)
  1. SUBOXONE FILM [Suspect]
     Indication: DRUG DEPENDENCE
     Dosage: SUBOXONE FILM
     Route: 060
     Dates: start: 2010
  2. SUBOXONE FILM [Suspect]
     Dosage: SUBOXONE FILM; VARIOUS TAPERED DOSES TO 10 MG DAILY
     Route: 060
     Dates: end: 201306

REACTIONS (4)
  - Wrong technique in drug usage process [Recovered/Resolved]
  - Facial bones fracture [Recovered/Resolved]
  - Victim of crime [Recovered/Resolved]
  - Concussion [Recovered/Resolved]
